FAERS Safety Report 25534190 (Version 1)
Quarter: 2025Q3

REPORT INFORMATION
  Report Type: Spontaneous
  Country: US (occurrence: None)
  Receive Date: 20250708
  Receipt Date: 20250708
  Transmission Date: 20251020
  Serious: Yes (Other)
  Sender: FDA-CTU
  Company Number: None

PATIENT
  Age: 63 Year
  Sex: Female

DRUGS (2)
  1. HUMIRA [Suspect]
     Active Substance: ADALIMUMAB
     Dosage: FREQUENCY : EVERY OTHER WEEK;?
  2. TREMFYA [Suspect]
     Active Substance: GUSELKUMAB

REACTIONS (2)
  - Therapeutic product effect decreased [None]
  - Drug ineffective [None]
